FAERS Safety Report 22200497 (Version 1)
Quarter: 2023Q2

REPORT INFORMATION
  Report Type: Spontaneous
  Country: US (occurrence: US)
  Receive Date: 20230412
  Receipt Date: 20230412
  Transmission Date: 20230721
  Serious: Yes (Other)
  Sender: FDA-Public Use
  Company Number: US-SUN PHARMACEUTICAL INDUSTRIES LTD-2023R1-383529

PATIENT

DRUGS (2)
  1. RANITIDINE [Suspect]
     Active Substance: RANITIDINE
     Indication: Product used for unknown indication
     Dosage: UNK
     Route: 065
     Dates: start: 1986, end: 2019
  2. RANITIDINE [Suspect]
     Active Substance: RANITIDINE
     Dosage: UNK
     Route: 065
     Dates: start: 2005, end: 2014

REACTIONS (2)
  - Bladder cancer [Unknown]
  - Oesophageal carcinoma [Unknown]

NARRATIVE: CASE EVENT DATE: 20140301
